FAERS Safety Report 5210755-4 (Version None)
Quarter: 2006Q4

REPORT INFORMATION
  Report Type: 
  Country: None (occurrence: None)
  Receive Date: 20061130
  Receipt Date: 20060824
  Transmission Date: 20070319
  Serious: Yes (Disabling, Other)
  Sender: FDA-Public Use
  Company Number: WAES 0608USA05901

PATIENT
  Age: 56 Year
  Sex: Female
  Weight: 59.8748 kg

DRUGS (9)
  1. TAB FOSAMAX 35 MG/70 MG [Suspect]
     Indication: OSTEOPENIA
     Dosage: 35 MG/WKY/PO;70 MG/WKY/PO
     Route: 048
     Dates: start: 20010517, end: 20040921
  2. TAB FOSAMAX 35 MG/70 MG [Suspect]
     Indication: OSTEOPOROSIS
     Dosage: 35 MG/WKY/PO;70 MG/WKY/PO
     Route: 048
     Dates: start: 20010517, end: 20040921
  3. TAB FOSAMAX 35 MG/70 MG [Suspect]
     Indication: OSTEOPENIA
     Dosage: 35 MG/WKY/PO;70 MG/WKY/PO
     Route: 048
     Dates: start: 20020401, end: 20050901
  4. TAB FOSAMAX 35 MG/70 MG [Suspect]
     Indication: OSTEOPOROSIS
     Dosage: 35 MG/WKY/PO;70 MG/WKY/PO
     Route: 048
     Dates: start: 20020401, end: 20050901
  5. BONIVA [Concomitant]
  6. PREMPRO [Concomitant]
  7. FOSAMAX PLUS D [Suspect]
     Indication: OSTEOPENIA
     Dosage: 70 MG/2800 IU/WKY/PO
     Route: 048
     Dates: start: 20050922
  8. FOSAMAX PLUS D [Suspect]
     Indication: OSTEOPOROSIS
     Dosage: 70 MG/2800 IU/WKY/PO
     Route: 048
     Dates: start: 20050922
  9. ASPIRIN [Concomitant]

REACTIONS (2)
  - BRADYARRHYTHMIA [None]
  - OSTEONECROSIS [None]
